FAERS Safety Report 14071784 (Version 1)
Quarter: 2017Q4

REPORT INFORMATION
  Report Type: Spontaneous
  Country: US (occurrence: US)
  Receive Date: 20171010
  Receipt Date: 20171010
  Transmission Date: 20180321
  Serious: Yes (Other)
  Sender: FDA-Public Use
  Company Number: None

PATIENT
  Age: 59 Year
  Weight: 90 kg

DRUGS (1)
  1. DOXYCYCLINE HYC [Suspect]
     Active Substance: DOXYCYCLINE HYCLATE
     Indication: PERIODONTAL DISEASE
     Dosage: ?          QUANTITY:1 TABLET(S);?
     Route: 048
     Dates: start: 20171010, end: 20171010

REACTIONS (5)
  - Headache [None]
  - Nausea [None]
  - Heart rate increased [None]
  - Hypoaesthesia oral [None]
  - Hypoaesthesia [None]

NARRATIVE: CASE EVENT DATE: 20171010
